FAERS Safety Report 4674308-9 (Version None)
Quarter: 2005Q2

REPORT INFORMATION
  Report Type: 
  Country: None (occurrence: None)
  Receive Date: 20050526
  Receipt Date: 20050519
  Transmission Date: 20051028
  Serious: Yes (Other)
  Sender: FDA-Public Use
  Company Number: 200514362US

PATIENT
  Sex: Male
  Weight: 131.8 kg

DRUGS (6)
  1. LOVENOX [Suspect]
     Indication: THROMBOSIS
     Dates: start: 20050429
  2. INTRAVENOUS HEPARIN [Concomitant]
     Indication: PULMONARY EMBOLISM
     Dosage: DOSE: UNK
     Route: 042
     Dates: start: 20050429, end: 20050506
  3. COUMADIN [Concomitant]
  4. XANAX [Concomitant]
     Dosage: DOSE: UNK
  5. UNKNOWN DRUG [Concomitant]
     Dosage: DOSE: UNK
  6. OXYCONTIN [Concomitant]
     Dosage: DOSE: UNK

REACTIONS (11)
  - ANOREXIA [None]
  - ANXIETY [None]
  - CHEST PAIN [None]
  - DIARRHOEA [None]
  - DIZZINESS [None]
  - DYSPNOEA [None]
  - INTERNATIONAL NORMALISED RATIO DECREASED [None]
  - LOSS OF CONSCIOUSNESS [None]
  - NAUSEA [None]
  - SYNCOPE [None]
  - VOMITING [None]
